FAERS Safety Report 24524663 (Version 5)
Quarter: 2025Q3

REPORT INFORMATION
  Report Type: Report from Study
  Country: CN (occurrence: CN)
  Receive Date: 20241019
  Receipt Date: 20250810
  Transmission Date: 20251020
  Serious: Yes (Hospitalization, Other)
  Sender: ALEXION PHARMACEUTICALS
  Company Number: CN-ASTRAZENECA-202409GLO002456CN

PATIENT
  Age: 77 Year
  Sex: Male

DRUGS (14)
  1. OLAPARIB [Suspect]
     Active Substance: OLAPARIB
     Indication: Prostate cancer
     Dates: start: 20240619, end: 20240810
  2. OLAPARIB [Suspect]
     Active Substance: OLAPARIB
     Dates: start: 20240811, end: 20240917
  3. OLAPARIB [Suspect]
     Active Substance: OLAPARIB
  4. DEXAMETHASONE SODIUM PHOSPHATE [Concomitant]
     Active Substance: DEXAMETHASONE SODIUM PHOSPHATE
     Indication: Prophylaxis
  5. ZOLEDRONIC ACID [Concomitant]
     Active Substance: ZOLEDRONIC ACID
     Indication: Prophylaxis
  6. TEPRENONE [Concomitant]
     Active Substance: TEPRENONE
     Indication: Prophylaxis
     Route: 065
  7. RIVASTIGMINE TARTRATE [Concomitant]
     Active Substance: RIVASTIGMINE TARTRATE
     Indication: Dementia Alzheimer^s type
     Route: 065
  8. TANDOSPIRONE CITRATE [Concomitant]
     Active Substance: TANDOSPIRONE CITRATE
     Indication: Anxiety
     Route: 065
  9. CLOPIDOGREL [Concomitant]
     Active Substance: CLOPIDOGREL BISULFATE
     Indication: Prophylaxis
     Route: 065
  10. BATILOL [Concomitant]
     Active Substance: BATILOL
     Indication: Prophylaxis
     Route: 065
     Dates: start: 20240910, end: 20240920
  11. BATILOL [Concomitant]
     Active Substance: BATILOL
     Route: 065
  12. Compound alpha ketoacid [Concomitant]
     Indication: Chronic kidney disease
     Route: 065
     Dates: start: 20240910, end: 20240921
  13. LOXOPROFEN SODIUM [Concomitant]
     Active Substance: LOXOPROFEN SODIUM
     Indication: Hepatic steatosis
     Route: 065
     Dates: start: 20240918, end: 20240918
  14. CEFOPERAZONE SODIUM\SULBACTAM SODIUM [Concomitant]
     Active Substance: CEFOPERAZONE SODIUM\SULBACTAM SODIUM
     Indication: Prophylaxis
     Route: 065
     Dates: start: 20240918, end: 20240923

REACTIONS (2)
  - Myelosuppression [Recovered/Resolved]
  - Hypokalaemia [Recovered/Resolved]

NARRATIVE: CASE EVENT DATE: 20240918
